FAERS Safety Report 12596375 (Version 1)
Quarter: 2016Q3

REPORT INFORMATION
  Report Type: Report from Study
  Country: US (occurrence: US)
  Receive Date: 20160726
  Receipt Date: 20160726
  Transmission Date: 20161109
  Serious: Yes (Death, Hospitalization)
  Sender: FDA-Public Use
  Company Number: US-TAKEDA-2016TUS012826

PATIENT
  Age: 75 Year
  Sex: Female
  Weight: 54.42 kg

DRUGS (2)
  1. FOSAMAX [Concomitant]
     Active Substance: ALENDRONATE SODIUM
     Indication: BONE DISORDER
     Dosage: UNK
     Route: 048
  2. COLCHICINE. [Suspect]
     Active Substance: COLCHICINE
     Indication: GOUT
     Dosage: 0.6 MG, QD
     Route: 048

REACTIONS (4)
  - Fall [Unknown]
  - Pneumonia [Fatal]
  - Complicated fracture [Fatal]
  - Lower limb fracture [Unknown]

NARRATIVE: CASE EVENT DATE: 20160606
